FAERS Safety Report 6275889-4 (Version None)
Quarter: 2009Q3

REPORT INFORMATION
  Report Type: 
  Country: None (occurrence: None)
  Receive Date: 20090720
  Receipt Date: 20090609
  Transmission Date: 20100115
  Serious: Yes (Other)
  Sender: FDA-Public Use
  Company Number: JPI-P-007545

PATIENT
  Age: 52 Year
  Sex: 0
  Weight: 72.5755 kg

DRUGS (6)
  1. XYREM [Suspect]
     Indication: CATAPLEXY
     Dosage: 4.5 GM (2.25 GM, 2 IN 1 D), ORAL, 6 GM, (3 GM, 2 IN 1 D), ORAL, 8 GM (4 GM, 2 IN 1 D), ORAL
     Route: 048
     Dates: start: 20030919
  2. XYREM [Suspect]
     Indication: FIBROMYALGIA
     Dosage: 4.5 GM (2.25 GM, 2 IN 1 D), ORAL, 6 GM, (3 GM, 2 IN 1 D), ORAL, 8 GM (4 GM, 2 IN 1 D), ORAL
     Route: 048
     Dates: start: 20030919
  3. XYREM [Suspect]
     Indication: MIGRAINE
     Dosage: 4.5 GM (2.25 GM, 2 IN 1 D), ORAL, 6 GM, (3 GM, 2 IN 1 D), ORAL, 8 GM (4 GM, 2 IN 1 D), ORAL
     Route: 048
     Dates: start: 20030919
  4. XYREM [Suspect]
     Indication: CATAPLEXY
     Dosage: 4.5 GM (2.25 GM, 2 IN 1 D), ORAL, 6 GM, (3 GM, 2 IN 1 D), ORAL, 8 GM (4 GM, 2 IN 1 D), ORAL
     Route: 048
     Dates: start: 20090421
  5. XYREM [Suspect]
     Indication: FIBROMYALGIA
     Dosage: 4.5 GM (2.25 GM, 2 IN 1 D), ORAL, 6 GM, (3 GM, 2 IN 1 D), ORAL, 8 GM (4 GM, 2 IN 1 D), ORAL
     Route: 048
     Dates: start: 20090421
  6. XYREM [Suspect]
     Indication: MIGRAINE
     Dosage: 4.5 GM (2.25 GM, 2 IN 1 D), ORAL, 6 GM, (3 GM, 2 IN 1 D), ORAL, 8 GM (4 GM, 2 IN 1 D), ORAL
     Route: 048
     Dates: start: 20090421

REACTIONS (7)
  - ARTHRALGIA [None]
  - BACK PAIN [None]
  - FALL [None]
  - GROIN PAIN [None]
  - HYPERTENSION [None]
  - NIGHT SWEATS [None]
  - RENAL DISORDER [None]
